FAERS Safety Report 10951053 (Version 1)
Quarter: 2015Q1

REPORT INFORMATION
  Report Type: Spontaneous
  Country: US (occurrence: None)
  Receive Date: 20150226
  Receipt Date: 20150226
  Transmission Date: 20150721
  Serious: Yes (Life-Threatening, Hospitalization)
  Sender: FDA-Public Use
  Company Number: TPA2010A00666

PATIENT
  Age: 72 Year
  Sex: Male
  Weight: 68.95 kg

DRUGS (9)
  1. TRILIPIX ( ALL OTHER THERAPEUTIC PRODUCTS) [Concomitant]
  2. CRESTOR 9ROSUVASTATIN CALCIUM) [Concomitant]
  3. NIASPAN (NICOTINIC ACID) [Concomitant]
  4. DIOVAN [Concomitant]
     Active Substance: VALSARTAN
  5. AVODART [Concomitant]
     Active Substance: DUTASTERIDE
  6. LUNESTA (ALL OTHER THERAPEUTIC PRODUCTS) [Concomitant]
  7. ACTOPLUS MET [Suspect]
     Active Substance: METFORMIN HYDROCHLORIDE\PIOGLITAZONE HYDROCHLORIDE
     Indication: TYPE 2 DIABETES MELLITUS
     Dosage: QAM, PER ORAL
     Route: 048
     Dates: start: 20100125, end: 201002
  8. ACTOPLUS (PIOGLITAZONE HYDROCHLORIDE [Concomitant]
  9. ASPIRIN (ACETYLSALICYLIC ACID) [Concomitant]
     Active Substance: ASPIRIN

REACTIONS (4)
  - Lactic acidosis [None]
  - Hypotension [None]
  - Hypothermia [None]
  - Shock [None]

NARRATIVE: CASE EVENT DATE: 20100201
